FAERS Safety Report 7571933-2 (Version None)
Quarter: 2011Q2

REPORT INFORMATION
  Report Type: 
  Country: None (occurrence: None)
  Receive Date: 20110620
  Receipt Date: 20110603
  Transmission Date: 20111010
  Serious: Yes (Hospitalization, Other)
  Sender: FDA-Public Use
  Company Number: 2011MA006773

PATIENT
  Age: 37 Year
  Sex: Female

DRUGS (1)
  1. PROPYLTHIOURACIL TAB [Suspect]
     Indication: BASEDOW'S DISEASE

REACTIONS (8)
  - SINUS TACHYCARDIA [None]
  - DRUG EXPOSURE DURING PREGNANCY [None]
  - PNEUMONIA [None]
  - AGRANULOCYTOSIS [None]
  - PALPITATIONS [None]
  - MALAISE [None]
  - HYPOCALCAEMIA [None]
  - OROPHARYNGEAL PAIN [None]
